FAERS Safety Report 7091399-9 (Version None)
Quarter: 2010Q4

REPORT INFORMATION
  Report Type: 
  Country: None (occurrence: None)
  Receive Date: 20101109
  Receipt Date: 20101104
  Transmission Date: 20110411
  Serious: Yes (Hospitalization, Congenital Anomaly)
  Sender: FDA-Public Use
  Company Number: A0891284A

PATIENT
  Sex: Male

DRUGS (1)
  1. PAXIL [Suspect]
     Dosage: 20MG IN THE MORNING

REACTIONS (4)
  - AORTIC VALVE INCOMPETENCE [None]
  - DRUG EXPOSURE DURING PREGNANCY [None]
  - SUBVALVULAR AORTIC STENOSIS [None]
  - SYNDACTYLY [None]
